FAERS Safety Report 5397761-4 (Version None)
Quarter: 2007Q3

REPORT INFORMATION
  Report Type: 
  Country: None (occurrence: None)
  Receive Date: 20070723
  Receipt Date: 20070723
  Transmission Date: 20080115
  Serious: No
  Sender: FDA-Public Use
  Company Number: None

PATIENT
  Age: 45 Year
  Sex: Male

DRUGS (1)
  1. IMMUNE GLOBULIN (IGIV) [Suspect]
     Dosage: 50 GRAMS
     Route: 042
     Dates: start: 20070509

REACTIONS (5)
  - GENERAL PHYSICAL HEALTH DETERIORATION [None]
  - INFUSION RELATED REACTION [None]
  - MENTAL STATUS CHANGES [None]
  - RESPIRATORY DISTRESS [None]
  - WHEEZING [None]
